FAERS Safety Report 16362404 (Version 4)
Quarter: 2021Q3

REPORT INFORMATION
  Report Type: Spontaneous
  Country: US (occurrence: US)
  Receive Date: 20190528
  Receipt Date: 20210730
  Transmission Date: 20211014
  Serious: No
  Sender: FDA-Public Use
  Company Number: US-PFIZER INC-2019228727

PATIENT
  Age: 80 Year
  Sex: Male

DRUGS (1)
  1. BOSULIF [Suspect]
     Active Substance: BOSUTINIB MONOHYDRATE
     Indication: ACUTE MYELOID LEUKAEMIA
     Dosage: 100 MG, DAILY [1 TAB(S) ORAL DAILY]
     Route: 048

REACTIONS (3)
  - Fatigue [Unknown]
  - Hypoacusis [Unknown]
  - Feeling abnormal [Unknown]
